FAERS Safety Report 18292851 (Version 2)
Quarter: 2022Q2

REPORT INFORMATION
  Report Type: Spontaneous
  Country: US (occurrence: US)
  Receive Date: 20200922
  Receipt Date: 20220622
  Transmission Date: 20220721
  Serious: Yes (Death, Other)
  Sender: FDA-Public Use
  Company Number: US-SA-2020SA253389

PATIENT
  Sex: Female

DRUGS (1)
  1. ZANTAC [Suspect]
     Active Substance: RANITIDINE HYDROCHLORIDE
     Dosage: UNK
     Route: 065
     Dates: start: 2000, end: 2019

REACTIONS (7)
  - Hepatic cancer [Fatal]
  - Colorectal cancer [Unknown]
  - Anxiety [Fatal]
  - Deformity [Fatal]
  - Emotional distress [Fatal]
  - Pain [Fatal]
  - Anhedonia [Unknown]

NARRATIVE: CASE EVENT DATE: 20200629
